FAERS Safety Report 4618587-2 (Version None)
Quarter: 2005Q1

REPORT INFORMATION
  Report Type: 
  Country: None (occurrence: None)
  Receive Date: 20050324
  Receipt Date: 20041202
  Transmission Date: 20050727
  Serious: Yes (Other)
  Sender: FDA-Public Use
  Company Number: 2004-120842-NL

PATIENT
  Age: 1 Month
  Sex: Male
  Weight: 2.5 kg

DRUGS (4)
  1. ZEMURON [Suspect]
     Indication: INTUBATION
     Dosage: 2 MG ONCE
     Dates: start: 20041001, end: 20041001
  2. ZEMURON [Suspect]
     Indication: MUSCLE RELAXANT THERAPY
     Dosage: 2 MG ONCE
     Dates: start: 20041001, end: 20041001
  3. ATIVAN [Concomitant]
  4. CAUDAL MEDICATION [Concomitant]

REACTIONS (3)
  - COMA [None]
  - HYPOKINESIA [None]
  - SOMNOLENCE [None]
